FAERS Safety Report 12456672 (Version 1)
Quarter: 2016Q2

REPORT INFORMATION
  Report Type: Report from Study
  Country: US (occurrence: US)
  Receive Date: 20160610
  Receipt Date: 20160610
  Transmission Date: 20160815
  Serious: Yes (Other)
  Sender: FDA-Public Use
  Company Number: US-PURDUE-USA-2016-0130833

PATIENT
  Age: 55 Year
  Sex: Female

DRUGS (2)
  1. OXYCONTIN [Suspect]
     Active Substance: OXYCODONE HYDROCHLORIDE
     Indication: PAIN
     Dosage: 40 MG, Q8H
     Route: 048
     Dates: start: 2013
  2. OXYCONTIN [Suspect]
     Active Substance: OXYCODONE HYDROCHLORIDE
     Indication: POST LAMINECTOMY SYNDROME
     Dosage: 40 MG, DAILY
     Route: 048
     Dates: start: 20160507

REACTIONS (8)
  - Gait disturbance [Unknown]
  - Hyperhidrosis [Unknown]
  - Pain [Unknown]
  - Tremor [Unknown]
  - Insomnia [Unknown]
  - Vomiting [Unknown]
  - Nausea [Unknown]
  - Hip arthroplasty [Recovered/Resolved]

NARRATIVE: CASE EVENT DATE: 201512
